FAERS Safety Report 18814009 (Version 1)
Quarter: 2021Q1

REPORT INFORMATION
  Report Type: Spontaneous
  Country: GB (occurrence: GB)
  Receive Date: 20210201
  Receipt Date: 20210201
  Transmission Date: 20210419
  Serious: Yes (Hospitalization)
  Sender: FDA-Public Use
  Company Number: GB-AXELLIA-003664

PATIENT
  Age: 90 Year
  Sex: Female

DRUGS (8)
  1. FUROSEMIDE. [Concomitant]
     Active Substance: FUROSEMIDE
  2. VANCOMYCIN [Suspect]
     Active Substance: VANCOMYCIN
     Indication: CLOSTRIDIUM DIFFICILE INFECTION
     Route: 048
     Dates: start: 20201223, end: 20210104
  3. PREGABALIN. [Concomitant]
     Active Substance: PREGABALIN
  4. MEMANTINE HYDROCHLORIDE. [Concomitant]
     Active Substance: MEMANTINE HYDROCHLORIDE
  5. RISPERIDONE. [Concomitant]
     Active Substance: RISPERIDONE
  6. NIFEDIPINE. [Concomitant]
     Active Substance: NIFEDIPINE
  7. TRIMETHOPRIM. [Concomitant]
     Active Substance: TRIMETHOPRIM
  8. FLUCLOXACILLIN [Concomitant]
     Active Substance: FLUCLOXACILLIN

REACTIONS (1)
  - Bradycardia [Not Recovered/Not Resolved]

NARRATIVE: CASE EVENT DATE: 20210102
